FAERS Safety Report 12804316 (Version 3)
Quarter: 2016Q4

REPORT INFORMATION
  Report Type: Spontaneous
  Country: FR (occurrence: FR)
  Receive Date: 20161003
  Receipt Date: 20161110
  Transmission Date: 20170207
  Serious: Yes (Hospitalization, Other)
  Sender: FDA-Public Use
  Company Number: FR-MYLANLABS-2016M1042343

PATIENT

DRUGS (2)
  1. DAFLON                             /00426001/ [Concomitant]
     Active Substance: DIOSMIN
     Indication: PRODUCT USED FOR UNKNOWN INDICATION
     Dosage: UNK
  2. FONDAPARINUX [Suspect]
     Active Substance: FONDAPARINUX
     Indication: THROMBOPHLEBITIS SUPERFICIAL
     Dosage: 2.5 MG/0.5 ML, QD
     Route: 058
     Dates: start: 20160613, end: 20160708

REACTIONS (2)
  - Pulmonary embolism [Recovered/Resolved]
  - Off label use [Recovered/Resolved]

NARRATIVE: CASE EVENT DATE: 201606
